FAERS Safety Report 4512688-5 (Version None)
Quarter: 2004Q4

REPORT INFORMATION
  Report Type: 
  Country: None (occurrence: None)
  Receive Date: 20041012
  Receipt Date: 20040514
  Transmission Date: 20050328
  Serious: No
  Sender: FDA-Public Use
  Company Number: A03200401548

PATIENT
  Age: 70 Year
  Sex: Male

DRUGS (3)
  1. UROXATRAL [Suspect]
     Indication: URINARY RETENTION
     Dosage: 10 MG OD, ORAL
     Route: 048
     Dates: start: 20040401
  2. NITROFURANTOIN [Concomitant]
  3. MULTIVITAMIN [Concomitant]

REACTIONS (1)
  - CHROMATURIA [None]
